FAERS Safety Report 16348102 (Version 34)
Quarter: 2023Q1

REPORT INFORMATION
  Report Type: Report from Study
  Country: GB (occurrence: GB)
  Receive Date: 20190523
  Receipt Date: 20230112
  Transmission Date: 20230418
  Serious: Yes (Death, Life-Threatening, Hospitalization, Other)
  Sender: FDA-Public Use
  Company Number: None

PATIENT
  Age: 72 Year
  Sex: Female

DRUGS (146)
  1. TRASTUZUMAB [Suspect]
     Active Substance: TRASTUZUMAB
     Indication: HER2 positive breast cancer
     Dosage: 400 MG (LOADING DOSE), Q3W
     Route: 042
     Dates: start: 20150513, end: 20150513
  2. TRASTUZUMAB [Suspect]
     Active Substance: TRASTUZUMAB
     Indication: Breast cancer metastatic
     Dosage: 300 MILLIGRAM, Q3W/ START DATE: 03-JUN-2015
     Route: 042
     Dates: start: 20150603, end: 20150604
  3. TRASTUZUMAB [Suspect]
     Active Substance: TRASTUZUMAB
     Dosage: 300 MILLIGRAM, Q3W// STAT DATE: 03-JUN-2015
     Route: 042
     Dates: start: 20150603, end: 20150804
  4. TRASTUZUMAB [Suspect]
     Active Substance: TRASTUZUMAB
     Dosage: 300 MILLIGRAM, Q3W/ START DATE: 03-JUN-2015
     Route: 042
     Dates: start: 20150603, end: 20150828
  5. TRASTUZUMAB [Suspect]
     Active Substance: TRASTUZUMAB
     Dosage: 400 MILLIGRAM, 3XW/ START DATE: 13-MAY-2015
     Route: 042
     Dates: start: 20150818, end: 20151211
  6. TRASTUZUMAB [Suspect]
     Active Substance: TRASTUZUMAB
     Dosage: 275 MILLIGRAM, Q3W / START DATE:18-SEP-2015
     Route: 042
     Dates: start: 20150918, end: 20151211
  7. TRASTUZUMAB [Suspect]
     Active Substance: TRASTUZUMAB
     Dosage: 300 MILLIGRAM, Q3W/ START DATE: 08-JAN-2016
     Route: 042
     Dates: start: 20160108, end: 20160405
  8. TRASTUZUMAB [Suspect]
     Active Substance: TRASTUZUMAB
     Dosage: 184 MILLIGRAM, Q3W/ START DATE: 26-APR-2016
     Route: 042
     Dates: start: 20160426, end: 20160720
  9. TRASTUZUMAB [Suspect]
     Active Substance: TRASTUZUMAB
     Dosage: 148 MILLIGRAM, 3XW/ START DATE: 10-AUG-2016
     Route: 042
     Dates: start: 20160810, end: 20170419
  10. TRASTUZUMAB [Suspect]
     Active Substance: TRASTUZUMAB
     Dosage: 160 MILLIGRAM, Q3W/ START DATE: 10-MAY-2017
     Route: 042
     Dates: start: 20170510, end: 20180808
  11. TRASTUZUMAB [Suspect]
     Active Substance: TRASTUZUMAB
     Dosage: 300 MILLIGRAM
     Route: 042
  12. TRASTUZUMAB [Suspect]
     Active Substance: TRASTUZUMAB
     Dosage: 300 MILLIGRAM, 3XW/ START DATE: 08-JAN-2016 (DOSE FORM: INJECTION)
     Route: 042
     Dates: start: 20160108, end: 20160405
  13. TRASTUZUMAB [Suspect]
     Active Substance: TRASTUZUMAB
     Dosage: 148 MILLIGRAM, 3XW/ START DATE: 10-AUG-2016 (DOSE FORM: INJECTION)
     Route: 042
     Dates: start: 20160810, end: 20170419
  14. TRASTUZUMAB [Suspect]
     Active Substance: TRASTUZUMAB
     Dosage: 300 MILLIGRAM, 3XW/ START DATE: 03-JUN-2015(DOSE FORM: INJECTION)
     Route: 042
     Dates: start: 20150603, end: 20150604
  15. TRASTUZUMAB [Suspect]
     Active Substance: TRASTUZUMAB
     Dosage: 275 MILLIGRAM, 3XW/ START DATE:18-AUG-2015 (DOSE FORM: INJECTION)
     Route: 042
     Dates: start: 20150818, end: 20151211
  16. TRASTUZUMAB [Suspect]
     Active Substance: TRASTUZUMAB
     Dosage: 300 MILLIGRAM, 3XW// STAT DATE: 03-JUN-2015 (DOSE FORM: INJECTION)
     Route: 042
     Dates: start: 20150603, end: 20150804
  17. TRASTUZUMAB [Suspect]
     Active Substance: TRASTUZUMAB
     Dosage: 160 MILLIGRAM, Q3W/ START DATE: 10-MAY-2017 (DOSE FORM: INJECTION)
     Route: 042
     Dates: start: 20170510, end: 20180808
  18. TRASTUZUMAB [Suspect]
     Active Substance: TRASTUZUMAB
     Dosage: 300 MILLIGRAM, Q3W
     Route: 042
     Dates: start: 20160106, end: 20160505
  19. TRASTUZUMAB [Suspect]
     Active Substance: TRASTUZUMAB
     Dosage: 184 MILLIGRAM, Q3W/ START DATE: 26-APR-2016
     Route: 042
     Dates: start: 20150818, end: 20160720
  20. TRASTUZUMAB [Suspect]
     Active Substance: TRASTUZUMAB
     Dosage: 148 MILLIGRAM, 3XW/ START DATE: 10-AUG-2016
     Route: 042
     Dates: start: 20160810, end: 20170419
  21. TRASTUZUMAB [Suspect]
     Active Substance: TRASTUZUMAB
     Dosage: 400 MILLIGRAM, CYCLE,LOADING DOSE
     Route: 042
     Dates: start: 20150513, end: 20150828
  22. TRASTUZUMAB [Suspect]
     Active Substance: TRASTUZUMAB
     Dosage: 300 MILLIGRAM, Q3W/ START DATE: 03-JUN-2015
     Route: 042
     Dates: start: 20150603, end: 20150820
  23. TRASTUZUMAB [Suspect]
     Active Substance: TRASTUZUMAB
     Dosage: 148 MILLIGRAM, 3XW/ START DATE: 10-AUG-2016
     Route: 042
     Dates: start: 20160810, end: 20170419
  24. TRASTUZUMAB [Suspect]
     Active Substance: TRASTUZUMAB
     Dosage: 900 MILLIGRAM
     Route: 042
     Dates: end: 20150604
  25. TRASTUZUMAB [Suspect]
     Active Substance: TRASTUZUMAB
     Dosage: 184 MILLIGRAM, Q3W/ START DATE: 26-APR-2016
     Route: 042
     Dates: end: 20160720
  26. TRASTUZUMAB [Suspect]
     Active Substance: TRASTUZUMAB
     Dosage: 300 MILLIGRAM
     Route: 042
     Dates: start: 20150603, end: 20150804
  27. TRASTUZUMAB [Suspect]
     Active Substance: TRASTUZUMAB
     Dosage: 900 MILLIGRAM
     Route: 042
     Dates: end: 20150804
  28. TRASTUZUMAB [Suspect]
     Active Substance: TRASTUZUMAB
     Dosage: 400 MILLIGRAM, QW
     Route: 042
     Dates: start: 20170510, end: 20180808
  29. TRASTUZUMAB [Suspect]
     Active Substance: TRASTUZUMAB
     Dosage: 480 MILLIGRAM, QW (480 MILLIGRAM, EVERY WEEK)
     Route: 042
     Dates: start: 20170510
  30. TRASTUZUMAB [Suspect]
     Active Substance: TRASTUZUMAB
     Dosage: 184 MILLIGRAM, Q3W
     Route: 042
     Dates: end: 20160720
  31. TRASTUZUMAB [Suspect]
     Active Substance: TRASTUZUMAB
     Dosage: 275 MILLIGRAM, Q3W
     Route: 042
     Dates: start: 20150513, end: 20150513
  32. TRASTUZUMAB [Suspect]
     Active Substance: TRASTUZUMAB
     Dosage: 184 MILLIGRAM, CYCLE (LOADING DOSE)
     Route: 042
     Dates: start: 20150513, end: 20150828
  33. DOCETAXEL [Suspect]
     Active Substance: DOCETAXEL
     Indication: Breast cancer metastatic
     Dosage: 92 MILLIGRAM, Q3W
     Route: 042
     Dates: start: 20150514, end: 20150715
  34. DOCETAXEL [Suspect]
     Active Substance: DOCETAXEL
     Dosage: 86 MILLIGRAM Q3W,MOST RECENT DOSE ON 18/SEP/2015
     Route: 042
     Dates: start: 20150828, end: 20150918
  35. DOCETAXEL [Suspect]
     Active Substance: DOCETAXEL
     Indication: HER2 positive breast cancer
     Dosage: 368 MILLIGRAM
     Route: 065
  36. EXEMESTANE [Suspect]
     Active Substance: EXEMESTANE
     Indication: HER2 positive breast cancer
     Dosage: 25 MILLIGRAM, QD/ START DATE: 13-OCT-2015
     Route: 048
     Dates: start: 20151013, end: 201604
  37. EXEMESTANE [Suspect]
     Active Substance: EXEMESTANE
     Indication: Breast cancer metastatic
     Dosage: 25 MILLIGRAM, QD/ START DATE: 13-OCT-2015
     Route: 048
     Dates: end: 201604
  38. HERCEPTIN [Suspect]
     Active Substance: TRASTUZUMAB
     Indication: Breast cancer metastatic
     Dosage: 400 MILLIGRAM
     Route: 042
     Dates: start: 20150513, end: 20150513
  39. HERCEPTIN [Suspect]
     Active Substance: TRASTUZUMAB
     Dosage: 300 MILLIGRAM
     Route: 042
     Dates: start: 20150603, end: 20150804
  40. HERCEPTIN [Suspect]
     Active Substance: TRASTUZUMAB
     Dosage: 275 MILLIGRAM
     Route: 042
     Dates: start: 20150818, end: 20151211
  41. HERCEPTIN [Suspect]
     Active Substance: TRASTUZUMAB
     Dosage: 300 MILLIGRAM (LOADING DOSE)
     Route: 042
     Dates: start: 20160108, end: 20160405
  42. PERTUZUMAB [Suspect]
     Active Substance: PERTUZUMAB
     Indication: HER2 positive breast cancer
     Dosage: 420 MILLIGRAM, Q3W/ START DATE: 03-JUN-2015
     Route: 042
     Dates: start: 20150603, end: 20150807
  43. PERTUZUMAB [Suspect]
     Active Substance: PERTUZUMAB
     Dosage: 420 MILLIGRAM, Q3W (420 MG, Q3W)
     Route: 042
  44. ADO-TRASTUZUMAB EMTANSINE [Suspect]
     Active Substance: ADO-TRASTUZUMAB EMTANSINE
     Indication: HER2 positive breast cancer
     Dosage: 184 MILLIGRAM, Q3W/ START DATE: 24-APR-2016
     Route: 042
  45. ADO-TRASTUZUMAB EMTANSINE [Suspect]
     Active Substance: ADO-TRASTUZUMAB EMTANSINE
     Dosage: 148 MILLIGRAM, Q3W/ START DATE: 10-AUG-2016
     Route: 042
     Dates: start: 20160810, end: 20170419
  46. ADO-TRASTUZUMAB EMTANSINE [Suspect]
     Active Substance: ADO-TRASTUZUMAB EMTANSINE
     Dosage: 160 MILLIGRAM, Q3W/ START DATE: 10-MAY-2017
     Route: 042
     Dates: start: 20170510, end: 20180808
  47. ADO-TRASTUZUMAB EMTANSINE [Suspect]
     Active Substance: ADO-TRASTUZUMAB EMTANSINE
     Dosage: 184 MILLIGRAM, Q3W/ START DATE: 26-APR-2016
     Route: 042
     Dates: start: 20160426, end: 20160720
  48. ADO-TRASTUZUMAB EMTANSINE [Suspect]
     Active Substance: ADO-TRASTUZUMAB EMTANSINE
     Dosage: 184 MILLIGRAM, Q3W, START 26-APR-2016
     Route: 042
     Dates: start: 20160426, end: 20160720
  49. ADO-TRASTUZUMAB EMTANSINE [Suspect]
     Active Substance: ADO-TRASTUZUMAB EMTANSINE
     Dosage: 148 MILLIGRAM, Q3W/ START DATE: 10-AUG-2016
     Route: 042
     Dates: start: 20160810, end: 20170419
  50. ADO-TRASTUZUMAB EMTANSINE [Suspect]
     Active Substance: ADO-TRASTUZUMAB EMTANSINE
     Dosage: 160 MILLIGRAM, Q3W/ START DATE: 10-MAY-2017
     Route: 042
     Dates: start: 20170510, end: 20180808
  51. ADO-TRASTUZUMAB EMTANSINE [Suspect]
     Active Substance: ADO-TRASTUZUMAB EMTANSINE
     Dosage: 184 MILLIGRAM, Q3W/ START DATE: 26-APR-2016
     Route: 042
     Dates: start: 20160426, end: 20160720
  52. ADO-TRASTUZUMAB EMTANSINE [Suspect]
     Active Substance: ADO-TRASTUZUMAB EMTANSINE
     Dosage: 148 MILLIGRAM, Q3W
     Route: 042
     Dates: start: 20170510, end: 20180808
  53. NERATINIB [Suspect]
     Active Substance: NERATINIB
     Indication: HER2 positive breast cancer
     Dosage: 240 MILLIGRAM, QD, START 25-AUG-2018
     Route: 048
     Dates: start: 20180825, end: 201811
  54. 3M CAVILON ANTIFUNGAL [Concomitant]
     Active Substance: MICONAZOLE NITRATE
     Indication: Prophylaxis
     Dosage: 92 GRAM/ START DATE: 04-AUG-2015
     Route: 061
  55. 3M CAVILON ANTIFUNGAL [Concomitant]
     Active Substance: MICONAZOLE NITRATE
     Dosage: UNK
     Route: 065
  56. CETIRIZINE HYDROCHLORIDE [Concomitant]
     Active Substance: CETIRIZINE HYDROCHLORIDE
     Indication: Product used for unknown indication
     Dosage: 10 MILLIGRAM, QD, START 05-AUG-2015
     Route: 048
     Dates: start: 20150805, end: 20150807
  57. CETIRIZINE HYDROCHLORIDE [Concomitant]
     Active Substance: CETIRIZINE HYDROCHLORIDE
     Dosage: 10 MILLIGRAM, QD, START 25-AUG-2015
     Route: 048
     Dates: start: 20150825, end: 20150827
  58. CETIRIZINE HYDROCHLORIDE [Concomitant]
     Active Substance: CETIRIZINE HYDROCHLORIDE
     Dosage: 10 MILLIGRAM/ START DATE: 06-APR-2019
     Route: 048
     Dates: start: 20190406
  59. CETIRIZINE HYDROCHLORIDE [Concomitant]
     Active Substance: CETIRIZINE HYDROCHLORIDE
     Dosage: UNK, QD, START 25-AUG-2015
     Route: 048
     Dates: start: 20150825, end: 20150827
  60. CETIRIZINE HYDROCHLORIDE [Concomitant]
     Active Substance: CETIRIZINE HYDROCHLORIDE
     Dosage: 10 MILLIGRAM, QD, START 05-AUG-2015
     Route: 048
     Dates: start: 20150805, end: 20190406
  61. CETIRIZINE HYDROCHLORIDE [Concomitant]
     Active Substance: CETIRIZINE HYDROCHLORIDE
     Dosage: 1 DOSAGE FORM, QD (1 OT, QD), START 25-AUG-2015
     Route: 048
     Dates: end: 20150827
  62. CETIRIZINE HYDROCHLORIDE [Concomitant]
     Active Substance: CETIRIZINE HYDROCHLORIDE
     Dosage: 1 MILLIGRAM, QD, START 25-AUG-2018
     Route: 048
     Dates: start: 20180825, end: 20180827
  63. CETIRIZINE HYDROCHLORIDE [Concomitant]
     Active Substance: CETIRIZINE HYDROCHLORIDE
     Dosage: 10 MILLIGRAM
     Route: 048
     Dates: end: 20190406
  64. CETIRIZINE HYDROCHLORIDE [Concomitant]
     Active Substance: CETIRIZINE HYDROCHLORIDE
     Dosage: 10 MILLIGRAM, QD, START DATE: 05-AUG-2015
     Route: 048
     Dates: start: 20150805, end: 20190406
  65. CETIRIZINE HYDROCHLORIDE [Concomitant]
     Active Substance: CETIRIZINE HYDROCHLORIDE
     Dosage: 10 MILLIGRAM, QD, / START DATE: 05-AUG-2015
     Route: 048
     Dates: end: 20150807
  66. DOMPERIDONE [Concomitant]
     Active Substance: DOMPERIDONE
     Indication: Prophylaxis
     Dosage: 10 MILLIGRAM, QD/ START DATE:03-AUG-2015
     Route: 048
     Dates: start: 20150803, end: 20150805
  67. DOMPERIDONE [Concomitant]
     Active Substance: DOMPERIDONE
     Dosage: 30 MILLIGRAM, QD/ START DATE: 03-AUG-2015
     Route: 048
     Dates: end: 20150805
  68. DOMPERIDONE [Concomitant]
     Active Substance: DOMPERIDONE
     Dosage: 10 MILLIGRAM, TID/ START DATE: 03-AUG-2015
     Route: 048
     Dates: end: 20150805
  69. RANITIDINE [Concomitant]
     Active Substance: RANITIDINE
     Indication: Product used for unknown indication
     Dosage: 150 MILLIGRAM, QD/ START DATE:05-AUG-2015
     Route: 048
     Dates: end: 20150807
  70. RANITIDINE [Concomitant]
     Active Substance: RANITIDINE
     Dosage: 300 MILLIGRAM, QD/ START DATE: 05-AUG-2015
     Route: 048
     Dates: end: 20150807
  71. RANITIDINE [Concomitant]
     Active Substance: RANITIDINE
     Dosage: 150 MILLIGRAM, QD/ START DATE:25-AUG-2015
     Route: 048
     Dates: start: 20150825, end: 20150827
  72. RANITIDINE [Concomitant]
     Active Substance: RANITIDINE
     Dosage: 300 MILLIGRAM, QD/ START DATE: 25-AUG-2015
     Route: 048
     Dates: start: 20150825, end: 20150827
  73. RANITIDINE [Concomitant]
     Active Substance: RANITIDINE
     Dosage: 150 MILLIGRAM, QD, START 05-AUG-2015
     Route: 048
     Dates: start: 20150805, end: 20150807
  74. RANITIDINE [Concomitant]
     Active Substance: RANITIDINE
     Dosage: 150 MILLIGRAM, QD, START 25-AUG-2015
     Route: 048
     Dates: start: 20150825, end: 20150827
  75. RANITIDINE [Concomitant]
     Active Substance: RANITIDINE
     Dosage: 300 MILLIGRAM, QD, START 25-AUG-2015
     Route: 065
     Dates: start: 20150825
  76. RANITIDINE [Concomitant]
     Active Substance: RANITIDINE
     Dosage: 300 MILLIGRAM, QD/ START DATE: 05-AUG-2015
     Route: 048
     Dates: start: 20150805, end: 20150807
  77. CLAVULANIC ACID [Concomitant]
     Active Substance: CLAVULANIC ACID
     Indication: Infection
     Dosage: 125 MILLIGRAM, QD, START 04-AUG-2015
     Route: 048
     Dates: start: 20150804, end: 20150810
  78. CLAVULANIC ACID [Concomitant]
     Active Substance: CLAVULANIC ACID
     Dosage: 375 MILLIGRAM, QD/ START DATE: 04-AUG-2015
     Route: 048
     Dates: start: 20150804, end: 20150810
  79. DEXAMETHASONE [Concomitant]
     Active Substance: DEXAMETHASONE
     Indication: Product used for unknown indication
     Dosage: 20 MILLILITER, QD (LIQUID), START 14-JUL-2015
     Route: 047
     Dates: start: 20150714, end: 20150923
  80. DEXAMETHASONE [Concomitant]
     Active Substance: DEXAMETHASONE
     Dosage: 4 MILLIGRAM, QD, START 03-AUG-2015
     Route: 048
     Dates: start: 20150803, end: 20150805
  81. DEXAMETHASONE [Concomitant]
     Active Substance: DEXAMETHASONE
     Dosage: 5 MILLILITER, QD (LIQUID), START 14-JUL-2015
     Route: 047
     Dates: start: 20150714, end: 20150923
  82. DEXAMETHASONE [Concomitant]
     Active Substance: DEXAMETHASONE
     Dosage: 2 MILLIGRAM/ SATRT DATE:02-OCT-2018
     Route: 048
     Dates: start: 20181002, end: 20181212
  83. DEXAMETHASONE [Concomitant]
     Active Substance: DEXAMETHASONE
     Dosage: 8 MILLIGRAM, QD, START 03-AUG-2015
     Route: 048
     Dates: start: 20150803, end: 20150805
  84. DEXAMETHASONE [Concomitant]
     Active Substance: DEXAMETHASONE
     Dosage: 2 MILLIGRAM, QD, 2 MILLIGRAM THREE DAYS PRIOR TO CHEMOTHERAPY, START DATE: 03-AUG-2015
     Route: 048
     Dates: start: 20150803, end: 20150805
  85. AMOXICILLIN [Concomitant]
     Active Substance: AMOXICILLIN
     Indication: Infection
     Dosage: 1500 MILLIGRAM, QD, START 04-AUG-2015
     Route: 048
     Dates: start: 20150804, end: 20150810
  86. AMOXICILLIN [Concomitant]
     Active Substance: AMOXICILLIN
     Dosage: 500 MILLIGRAM, QD, START 04-AUG-2015
     Route: 048
     Dates: start: 20150804, end: 20150810
  87. AMOXICILLIN [Concomitant]
     Active Substance: AMOXICILLIN
     Dosage: 625 MILLIGRAM, QD, START 04-AUG-2015
     Route: 048
     Dates: start: 20150804, end: 20150810
  88. AMOXICILLIN [Concomitant]
     Active Substance: AMOXICILLIN
     Dosage: 625 MILLIGRAM, START 22-SEP-2018
     Route: 048
     Dates: start: 20180922, end: 20180930
  89. AMOXICILLIN [Concomitant]
     Active Substance: AMOXICILLIN
     Dosage: 625 MILLIGRAM, 23-SEP-2018
     Route: 048
     Dates: start: 20180923, end: 20180930
  90. CHLORPHENIRAMINE MALEATE [Concomitant]
     Active Substance: CHLORPHENIRAMINE MALEATE
     Indication: Pruritus
     Dosage: 10 MILLIGRAM, START 07-AUG-2015
     Route: 042
     Dates: start: 20150807, end: 20150807
  91. BUDESONIDE [Concomitant]
     Active Substance: BUDESONIDE
     Indication: Product used for unknown indication
     Dosage: 9 MILLIGRAM, START 25-OCT-2018
     Route: 048
     Dates: start: 20181025, end: 20181114
  92. OMEPRAZOLE [Concomitant]
     Active Substance: OMEPRAZOLE
     Indication: Prophylaxis
     Dosage: 20 MILLIGRAM, QD/ START DATE: JAN-2019
     Route: 048
     Dates: start: 201901, end: 20190406
  93. OMEPRAZOLE [Concomitant]
     Active Substance: OMEPRAZOLE
     Dosage: 20 MILLIGRAM, QD/ START DATE: JAN-2019
     Route: 048
     Dates: end: 20190406
  94. OXYCODONE [Concomitant]
     Active Substance: OXYCODONE
     Indication: Product used for unknown indication
     Dosage: 1.25 MILLIGRAM / START DATE: JAN-2019
     Route: 058
     Dates: start: 201901, end: 20190406
  95. OXYCODONE [Concomitant]
     Active Substance: OXYCODONE
     Dosage: 1.25 MILLIGRAM / START DATE: JAN-2019
     Route: 058
     Dates: end: 20190406
  96. GLYCOPYRROLATE [Concomitant]
     Active Substance: GLYCOPYRROLATE
     Indication: Product used for unknown indication
     Dosage: 200 MICROGRAM, PRN/ START DATE: JAN-2019
     Route: 058
     Dates: end: 20190406
  97. GLYCOPYRROLATE [Concomitant]
     Active Substance: GLYCOPYRROLATE
     Dosage: 200 MICROGRAM, START JAN-2019
     Route: 058
     Dates: start: 201901, end: 20190406
  98. AMOXICILLIN\CLAVULANATE POTASSIUM [Concomitant]
     Active Substance: AMOXICILLIN\CLAVULANATE POTASSIUM
     Indication: Product used for unknown indication
     Dosage: 625 MILLIGRAM, START 23-SEP-2018
     Route: 042
     Dates: start: 20180923, end: 20180930
  99. AMOXICILLIN\CLAVULANATE POTASSIUM [Concomitant]
     Active Substance: AMOXICILLIN\CLAVULANATE POTASSIUM
     Dosage: 1875 MILLIGRAM, QD, START 04-AUG-2015
     Route: 048
     Dates: start: 20150804, end: 20150810
  100. AMOXICILLIN\CLAVULANATE POTASSIUM [Concomitant]
     Active Substance: AMOXICILLIN\CLAVULANATE POTASSIUM
     Dosage: 625 MILLIGRAM, START 04-AUG-2015
     Route: 048
     Dates: start: 20150804, end: 20150810
  101. AMOXICILLIN\CLAVULANATE POTASSIUM [Concomitant]
     Active Substance: AMOXICILLIN\CLAVULANATE POTASSIUM
     Dosage: 625 MILLIGRAM/ START DATE: 23-SEP-2018
     Route: 048
     Dates: start: 20180923, end: 20180930
  102. AMOXICILLIN\CLAVULANATE POTASSIUM [Concomitant]
     Active Substance: AMOXICILLIN\CLAVULANATE POTASSIUM
     Dosage: 625 MILLIGRAM, START 23-SEP-2018
     Route: 048
     Dates: start: 20180923, end: 20180930
  103. LOPERAMIDE [Concomitant]
     Active Substance: LOPERAMIDE
     Indication: Product used for unknown indication
     Dosage: 2 MILLIGRAM/ START DATE: 25-OCT-2018
     Route: 048
     Dates: start: 20181025, end: 20190406
  104. LOPERAMIDE [Concomitant]
     Active Substance: LOPERAMIDE
     Dosage: 2 MILLIGRAM/ START DATE: 25-OCT-2018
     Route: 048
     Dates: end: 20190406
  105. HYPROMELLOSES [Concomitant]
     Active Substance: HYPROMELLOSES
     Indication: Lacrimation increased
     Dosage: UNK, QD
     Route: 047
     Dates: end: 20160401
  106. HYPROMELLOSES [Concomitant]
     Active Substance: HYPROMELLOSES
     Dosage: UNK, 0.33
     Route: 047
     Dates: end: 20160401
  107. HYPROMELLOSES [Concomitant]
     Active Substance: HYPROMELLOSES
     Dosage: 3 DOSAGE FORM, QD, (3 DF, QD)
     Route: 047
     Dates: end: 20160401
  108. CYCLIZINE [Concomitant]
     Active Substance: CYCLIZINE
     Indication: Product used for unknown indication
     Dosage: 50 MILLIGRAM, START JAN-2019
     Route: 058
     Dates: end: 20190406
  109. LACTULOSE [Concomitant]
     Active Substance: LACTULOSE
     Indication: Product used for unknown indication
     Dosage: UNK, QD/ START DATE: JAN-2019
     Route: 048
     Dates: end: 20190406
  110. LACTULOSE [Concomitant]
     Active Substance: LACTULOSE
     Dosage: 20 MILLILITER, OD (20 ML, M3), START JAN-2019
     Route: 048
     Dates: start: 201901, end: 20190406
  111. POTASSIUM BICARBONATE\POTASSIUM CHLORIDE [Concomitant]
     Active Substance: POTASSIUM BICARBONATE\POTASSIUM CHLORIDE
     Indication: Product used for unknown indication
     Dosage: START DATE: 05-JUN-2018
     Route: 048
     Dates: start: 20180605, end: 20180607
  112. POTASSIUM BICARBONATE\POTASSIUM CHLORIDE [Concomitant]
     Active Substance: POTASSIUM BICARBONATE\POTASSIUM CHLORIDE
     Dosage: 4 DOSAGE FORM, QD/ START DATE: 20-NOV-2018
     Route: 048
     Dates: start: 20181120, end: 20181125
  113. POTASSIUM BICARBONATE\POTASSIUM CHLORIDE [Concomitant]
     Active Substance: POTASSIUM BICARBONATE\POTASSIUM CHLORIDE
     Dosage: UNK UNK, BID/ START DATE: 20-NOV-2018
     Route: 048
     Dates: end: 20181125
  114. POTASSIUM BICARBONATE\POTASSIUM CHLORIDE [Concomitant]
     Active Substance: POTASSIUM BICARBONATE\POTASSIUM CHLORIDE
     Dosage: 4 DOSAGE FORM, QD, START 20-NOV-2018
     Route: 048
     Dates: end: 20181125
  115. POTASSIUM BICARBONATE\POTASSIUM CHLORIDE [Concomitant]
     Active Substance: POTASSIUM BICARBONATE\POTASSIUM CHLORIDE
     Dosage: 36 DOSAGE FORM, START 05-JUN-2018
     Route: 048
     Dates: end: 20180607
  116. SENNOSIDE B [Concomitant]
     Active Substance: SENNOSIDE B
     Indication: Constipation
     Dosage: 30 MILLIGRAM, QD, START 09-AUG-2016
     Route: 048
     Dates: start: 20160809, end: 20190406
  117. SENNOSIDE B [Concomitant]
     Active Substance: SENNOSIDE B
     Dosage: 15 MILLIGRAM, BID/ START DATE: 09-AUG-2016
     Route: 048
     Dates: start: 20160809, end: 20190406
  118. SENNOSIDE B [Concomitant]
     Active Substance: SENNOSIDE B
     Dosage: 15 MILLIGRAM, START 09-AUG-2016
     Route: 048
     Dates: start: 20160809, end: 20190406
  119. SENNOSIDE B [Concomitant]
     Active Substance: SENNOSIDE B
     Dosage: 30 MILLIGRAM, QD, START 09-AUG-2016
     Route: 048
     Dates: start: 20160809, end: 20190406
  120. SENNOSIDE B [Concomitant]
     Active Substance: SENNOSIDE B
     Dosage: 15 MILLIGRAM, START 09-AUG-2016
     Route: 048
     Dates: start: 20160809, end: 20190406
  121. MIDAZOLAM [Concomitant]
     Active Substance: MIDAZOLAM
     Indication: Product used for unknown indication
     Dosage: 2.5 MILLIGRAM/ START DATE: JAN-2019
     Route: 058
     Dates: start: 201901, end: 20190406
  122. MIDAZOLAM [Concomitant]
     Active Substance: MIDAZOLAM
     Dosage: 2.5 MILLIGRAM/ START DATE: JAN-2019
     Route: 058
     Dates: end: 20190406
  123. CALAMINE [Concomitant]
     Active Substance: CALAMINE\FERRIC OXIDE RED\ZINC OXIDE
     Indication: Dry skin
     Dosage: UNK, START AUG-2015
     Route: 061
     Dates: start: 201508, end: 201601
  124. CALAMINE [Concomitant]
     Active Substance: CALAMINE\FERRIC OXIDE RED\ZINC OXIDE
     Dosage: UNK
     Route: 061
  125. LEVETIRACETAM [Concomitant]
     Active Substance: LEVETIRACETAM
     Indication: Product used for unknown indication
     Dosage: 1000 MILLIGRAM, QD/ START DATE: 18-SEP-2018
     Route: 048
     Dates: start: 20180918, end: 20190406
  126. LEVETIRACETAM [Concomitant]
     Active Substance: LEVETIRACETAM
     Dosage: 500 MILLIGRAM, QD, START 18-SEP-2018
     Route: 048
     Dates: start: 20180918, end: 20190406
  127. LEVETIRACETAM [Concomitant]
     Active Substance: LEVETIRACETAM
     Dosage: 1000 MILLIGRAM, QD, START 18-SEP-2018
     Route: 048
     Dates: start: 20180918, end: 20190406
  128. LEVETIRACETAM [Concomitant]
     Active Substance: LEVETIRACETAM
     Dosage: 500 MILLIGRAM, QD/ START DATE: 18-SEP-2018
     Route: 048
     Dates: start: 20180918, end: 20190406
  129. LORAZEPAM [Concomitant]
     Active Substance: LORAZEPAM
     Indication: Panic attack
     Dosage: 0.5 MILLIGRAM, START 30-AUG-2016
     Route: 048
     Dates: start: 20160830, end: 20190406
  130. LORAZEPAM [Concomitant]
     Active Substance: LORAZEPAM
     Indication: Insomnia
     Dosage: 0.5 MILLIGRAM, 30-AUG-2016
     Route: 048
     Dates: start: 20160830, end: 20190406
  131. LORAZEPAM [Concomitant]
     Active Substance: LORAZEPAM
     Indication: Panic attack
     Dosage: 2 MILLIGRAM, QD, START 17-SEP-2018
     Route: 042
     Dates: start: 20180917, end: 20180918
  132. LORAZEPAM [Concomitant]
     Active Substance: LORAZEPAM
     Indication: Insomnia
     Dosage: 2 MILLIGRAM, QD, START 17-SEP-2018
     Route: 042
     Dates: start: 20180917, end: 20180918
  133. HYDROCORTISONE [Concomitant]
     Active Substance: HYDROCORTISONE
     Indication: Pruritus
     Dosage: 100 MILLIGRAM/ START DATE: 07-AUG-2015
     Route: 042
     Dates: start: 20150807, end: 20150807
  134. HYDROCORTISONE [Concomitant]
     Active Substance: HYDROCORTISONE
     Dosage: 100 MILLIGRAM, START 07-AUG-2015
     Route: 042
     Dates: start: 20150807, end: 20150807
  135. LANSOPRAZOLE [Concomitant]
     Active Substance: LANSOPRAZOLE
     Indication: Abdominal discomfort
     Dosage: 30 MILLIGRAM, QD/ START DATE: 02-OCT-2018
     Route: 048
     Dates: start: 20181002, end: 201901
  136. LANSOPRAZOLE [Concomitant]
     Active Substance: LANSOPRAZOLE
     Dosage: 30 MILLIGRAM/ START DATE: 02-OCT-2018
     Route: 048
     Dates: end: 201908
  137. LANSOPRAZOLE [Concomitant]
     Active Substance: LANSOPRAZOLE
     Dosage: 30 MILLIGRAM, QD/ START DATE: 02-OCT-2018
     Route: 048
     Dates: end: 201901
  138. LANSOPRAZOLE [Concomitant]
     Active Substance: LANSOPRAZOLE
     Dosage: 30 MILLIGRAM, QD/ START DATE: 02-OCT-2018
     Route: 048
     Dates: end: 201908
  139. TICARCILLIN [Concomitant]
     Active Substance: TICARCILLIN
     Indication: Infection
     Dosage: 125 MILLIGRAM, QD, START 04-AUG-2015
     Route: 048
     Dates: start: 20150804, end: 20150810
  140. POTASSIUM CHLORIDE [Concomitant]
     Active Substance: POTASSIUM CHLORIDE
     Indication: Product used for unknown indication
     Dosage: 2 DOSAGE FORM, QD/ START DATE: 20-NOV-2018
     Route: 065
     Dates: start: 20181120, end: 20181125
  141. POTASSIUM CHLORIDE [Concomitant]
     Active Substance: POTASSIUM CHLORIDE
     Dosage: 2 DOSAGE FORM, QD/ START DATE: 20-NOV-2018
     Route: 048
     Dates: end: 20181125
  142. BUDESONIDE [Concomitant]
     Active Substance: BUDESONIDE
     Dosage: 9 MILLIGRAM/ START DATE: 25-OCT-2018
     Route: 048
     Dates: end: 20181114
  143. BUDESONIDE [Concomitant]
     Active Substance: BUDESONIDE
     Dosage: 9 MILLIGRAM/ START DATE: 25-OCT-2018
     Route: 048
     Dates: end: 20181114
  144. SIMETHICONE (DIMETHICONE) [Concomitant]
     Active Substance: DIMETHICONE
     Dosage: UNK
     Route: 065
  145. DEXAMETHASONE [Concomitant]
     Active Substance: DEXAMETHASONE
     Dosage: 5 MILLIGRAM, QD, START 14-JUL-2015
     Route: 047
     Dates: end: 20150923
  146. AMOXICILLIN\CLAVULANATE POTASSIUM [Concomitant]
     Active Substance: AMOXICILLIN\CLAVULANATE POTASSIUM
     Dosage: UNK
     Route: 065

REACTIONS (24)
  - Disease progression [Fatal]
  - Anaphylactic reaction [Recovered/Resolved]
  - Amnesia [Not Recovered/Not Resolved]
  - Neuropathy peripheral [Not Recovered/Not Resolved]
  - Appendicitis [Recovered/Resolved]
  - Off label use [Unknown]
  - Hypokalaemia [Recovered/Resolved]
  - Dementia [Recovered/Resolved]
  - Seizure [Recovered/Resolved]
  - Memory impairment [Recovered/Resolved]
  - Catheter site haemorrhage [Recovered/Resolved]
  - Nail dystrophy [Recovered/Resolved]
  - Panic attack [Not Recovered/Not Resolved]
  - Chest discomfort [Recovered/Resolved]
  - Diarrhoea [Recovered/Resolved]
  - Axillary pain [Recovered/Resolved]
  - Lacrimation increased [Recovered/Resolved]
  - Dry skin [Recovered/Resolved]
  - Constipation [Not Recovered/Not Resolved]
  - Ejection fraction decreased [Unknown]
  - Fatigue [Recovered/Resolved]
  - Insomnia [Not Recovered/Not Resolved]
  - Pruritus [Recovered/Resolved]
  - Intentional product misuse [Unknown]

NARRATIVE: CASE EVENT DATE: 20150624
